FAERS Safety Report 8903136 (Version 2)
Quarter: 2012Q4

REPORT INFORMATION
  Report Type: 
  Country: GB (occurrence: GB)
  Receive Date: 20121113
  Receipt Date: 20121114
  Transmission Date: 20130627
  Serious: Yes (Hospitalization)
  Sender: FDA-Public Use
  Company Number: GB-PFIZER INC-2005012828

PATIENT
  Age: 77 Year
  Sex: Male

DRUGS (7)
  1. IBUPROFEN [Suspect]
     Dosage: 600 MG TID
     Route: 048
     Dates: start: 2001, end: 20041221
  2. ACETYLSALICYLIC ACID [Suspect]
     Indication: ANGINA PECTORIS
     Dosage: 75 MG DAILY
     Route: 048
     Dates: start: 200409, end: 20041221
  3. SIMVASTATIN [Concomitant]
     Indication: MYOCARDIAL ISCHEMIA
     Dosage: 20 MG QD
     Route: 048
     Dates: start: 200409
  4. RANITIDINE [Concomitant]
     Dosage: 150MG BID
     Route: 048
  5. METFORMIN HCL, ROSIGLITAZONE [Concomitant]
     Indication: DIABETES MELLITUS NON-INSULIN-DEPENDENT
     Dosage: 7/500, 2 BID
     Route: 048
  6. DILTIAZEM HCL [Concomitant]
     Indication: ANGINA PECTORIS
     Dosage: 90 MG BID
     Route: 048
     Dates: start: 200409
  7. NITROGLYCERIN [Concomitant]
     Indication: ANGINA PECTORIS
     Dosage: 2 PRN
     Route: 060

REACTIONS (7)
  - Erosive duodenitis [Recovering/Resolving]
  - Gastritis erosive [Recovering/Resolving]
  - Chest pain [Recovering/Resolving]
  - Gastric ulcer [Recovering/Resolving]
  - Gastritis [Recovering/Resolving]
  - Haemoglobin decreased [Recovering/Resolving]
  - Dizziness [Recovering/Resolving]
